FAERS Safety Report 7884791-3 (Version None)
Quarter: 2011Q4

REPORT INFORMATION
  Report Type: 
  Country: None (occurrence: None)
  Receive Date: 20111102
  Receipt Date: 20111024
  Transmission Date: 20120403
  Serious: Yes (Other)
  Sender: FDA-Public Use
  Company Number: PHHY2011BR85301

PATIENT
  Sex: Male

DRUGS (4)
  1. ENALAPRIL [Concomitant]
  2. EXFORGE [Suspect]
     Indication: HYPERTENSION
     Dosage: 320/10 MG
  3. SIMVASTATIN [Suspect]
     Dosage: 20 MG, UNK
  4. METOPROLOL SUCCINATE [Suspect]

REACTIONS (1)
  - BLOOD PRESSURE INADEQUATELY CONTROLLED [None]
